FAERS Safety Report 5391380-1 (Version None)
Quarter: 2007Q3

REPORT INFORMATION
  Report Type: 
  Country: None (occurrence: None)
  Receive Date: 20070716
  Receipt Date: 20070716
  Transmission Date: 20080115
  Serious: No
  Sender: FDA-Public Use
  Company Number: None

PATIENT

DRUGS (3)
  1. OXYCODONE HCL [Suspect]
  2. OXYCODONE HCL EXTENDED-RELEASE [Suspect]
  3. MS CONTIN [Suspect]

REACTIONS (1)
  - MEDICATION ERROR [None]
